FAERS Safety Report 7095905-X (Version None)
Quarter: 2010Q4

REPORT INFORMATION
  Report Type: 
  Country: None (occurrence: None)
  Receive Date: 20101109
  Receipt Date: 20101109
  Transmission Date: 20110411
  Serious: Yes (Disabling, Other)
  Sender: FDA-Public Use
  Company Number: None

PATIENT
  Age: 35 Year
  Sex: Male
  Weight: 88.4514 kg

DRUGS (2)
  1. CELEBREX [Suspect]
     Indication: INFLAMMATION
     Dosage: 200 MG BID PO
     Route: 048
     Dates: start: 20101016, end: 20101020
  2. CELEBREX [Suspect]
     Indication: PAIN
     Dosage: 200 MG BID PO
     Route: 048
     Dates: start: 20101016, end: 20101020

REACTIONS (4)
  - BLISTER [None]
  - HYPERSENSITIVITY [None]
  - PRURITUS GENERALISED [None]
  - STEVENS-JOHNSON SYNDROME [None]
